FAERS Safety Report 24740135 (Version 1)
Quarter: 2024Q4

REPORT INFORMATION
  Report Type: Spontaneous
  Country: FR (occurrence: FR)
  Receive Date: 20241216
  Receipt Date: 20241216
  Transmission Date: 20250115
  Serious: Yes (Life-Threatening, Other)
  Sender: ALEXION PHARMACEUTICALS
  Company Number: None

PATIENT
  Age: 63 Year

DRUGS (12)
  1. IMFINZI [Suspect]
     Active Substance: DURVALUMAB
     Indication: Lung neoplasm malignant
     Dosage: C1 : 10 MG/KG TOUTES LES 2 SEMAINES
  2. IMFINZI [Suspect]
     Active Substance: DURVALUMAB
     Dosage: C1 : 10 MG/KG TOUTES LES 2 SEMAINES
     Route: 042
  3. IMFINZI [Suspect]
     Active Substance: DURVALUMAB
     Dosage: C1 : 10 MG/KG TOUTES LES 2 SEMAINES
  4. IMFINZI [Suspect]
     Active Substance: DURVALUMAB
     Dosage: C1 : 10 MG/KG TOUTES LES 2 SEMAINES
     Route: 042
  5. IMFINZI [Suspect]
     Active Substance: DURVALUMAB
     Dosage: C2 : 10 MG/KG TOUTES LES 2 SEMAINES
  6. IMFINZI [Suspect]
     Active Substance: DURVALUMAB
     Dosage: C2 : 10 MG/KG TOUTES LES 2 SEMAINES
     Route: 042
  7. IMFINZI [Suspect]
     Active Substance: DURVALUMAB
     Dosage: C2 : 10 MG/KG TOUTES LES 2 SEMAINES
  8. IMFINZI [Suspect]
     Active Substance: DURVALUMAB
     Dosage: C2 : 10 MG/KG TOUTES LES 2 SEMAINES
     Route: 042
  9. IMFINZI [Suspect]
     Active Substance: DURVALUMAB
     Dosage: C3 : 10 MG/KG TOUTES LES 2 SEMAINES
  10. IMFINZI [Suspect]
     Active Substance: DURVALUMAB
     Dosage: C3 : 10 MG/KG TOUTES LES 2 SEMAINES
     Route: 042
  11. IMFINZI [Suspect]
     Active Substance: DURVALUMAB
     Dosage: C3 : 10 MG/KG TOUTES LES 2 SEMAINES
  12. IMFINZI [Suspect]
     Active Substance: DURVALUMAB
     Dosage: C3 : 10 MG/KG TOUTES LES 2 SEMAINES
     Route: 042

REACTIONS (2)
  - Lung disorder [Not Recovered/Not Resolved]
  - Pulmonary toxicity [Not Recovered/Not Resolved]
